FAERS Safety Report 23966542 (Version 1)
Quarter: 2024Q2

REPORT INFORMATION
  Report Type: Spontaneous
  Country: RU (occurrence: RU)
  Receive Date: 20240612
  Receipt Date: 20240612
  Transmission Date: 20240715
  Serious: Yes (Other)
  Sender: FDA-Public Use
  Company Number: RU-AMERICAN REGENT INC-2024002183

PATIENT
  Age: 27 Year
  Sex: Female
  Weight: 77 kg

DRUGS (2)
  1. FERINJECT [Suspect]
     Active Substance: FERRIC CARBOXYMALTOSE
     Indication: Anaemia of pregnancy
     Dosage: 100 MILLIGRAM, ONE TIME (100 MG,1 IN 1 TOTAL)
     Dates: start: 20240529, end: 20240529
  2. METHYLDOPA [Concomitant]
     Active Substance: METHYLDOPA
     Indication: Gestational hypertension
     Dosage: UNK
     Route: 065

REACTIONS (12)
  - Tachypnoea [Recovered/Resolved]
  - Restlessness [Recovered/Resolved]
  - Anxiety [Recovered/Resolved]
  - Pallor [Recovered/Resolved]
  - Asthenia [Recovered/Resolved]
  - Maternal exposure during pregnancy [Unknown]
  - Dyspnoea [Recovered/Resolved]
  - Chest discomfort [Recovered/Resolved]
  - Tachycardia [Recovered/Resolved]
  - Headache [Recovered/Resolved]
  - Pruritus [Recovered/Resolved]
  - Urticaria [Recovered/Resolved]

NARRATIVE: CASE EVENT DATE: 20240529
